FAERS Safety Report 9278246 (Version 2)
Quarter: 2013Q2

REPORT INFORMATION
  Report Type: Spontaneous
  Country: CN (occurrence: CN)
  Receive Date: 20130508
  Receipt Date: 20130513
  Transmission Date: 20140414
  Serious: Yes (Death)
  Sender: FDA-Public Use
  Company Number: CN-ROCHE-1222429

PATIENT
  Age: 55 Year
  Sex: Female

DRUGS (4)
  1. HERCEPTIN [Suspect]
     Indication: BREAST CANCER METASTATIC
     Route: 041
     Dates: start: 20130416
  2. DOCETAXEL [Suspect]
     Indication: BREAST CANCER METASTATIC
     Route: 041
     Dates: start: 20130416
  3. DISODIUM PAMIDRONATE [Concomitant]
     Indication: METASTASES TO BONE
     Route: 041
     Dates: start: 20130416
  4. CARBOPLATIN [Concomitant]
     Indication: BREAST CANCER METASTATIC
     Route: 041

REACTIONS (1)
  - Myocardial infarction [Fatal]
